FAERS Safety Report 19391670 (Version 2)
Quarter: 2021Q3

REPORT INFORMATION
  Report Type: Spontaneous
  Country: JP (occurrence: JP)
  Receive Date: 20210609
  Receipt Date: 20210707
  Transmission Date: 20211014
  Serious: Yes (Other)
  Sender: FDA-Public Use
  Company Number: JP-NOVOPROD-818548

PATIENT
  Sex: Male

DRUGS (7)
  1. NOVOSEVEN [Suspect]
     Active Substance: COAGULATION FACTOR VIIA RECOMBINANT HUMAN
     Dosage: UNK
     Route: 042
  2. FEIBA [Concomitant]
     Active Substance: ANTI-INHIBITOR COAGULANT COMPLEX
     Dosage: ONCE AT 120 MCG/KG
     Route: 042
  3. NOVOSEVEN [Suspect]
     Active Substance: COAGULATION FACTOR VIIA RECOMBINANT HUMAN
     Indication: IMMUNE TOLERANCE INDUCTION
     Dosage: 90 MCG/KG A TOTAL OF 6 TIMES
     Route: 042
  4. NOVOSEVEN [Suspect]
     Active Substance: COAGULATION FACTOR VIIA RECOMBINANT HUMAN
     Indication: HAEMOPHILIA A WITH ANTI FACTOR VIII
     Dosage: 270 MCG/KG
     Route: 042
  5. FEIBA [Concomitant]
     Active Substance: ANTI-INHIBITOR COAGULANT COMPLEX
     Indication: HAEMOPHILIA A WITH ANTI FACTOR VIII
     Dosage: ONCE EVERY 2 DAYS
     Route: 042
  6. NOVOSEVEN [Suspect]
     Active Substance: COAGULATION FACTOR VIIA RECOMBINANT HUMAN
     Dosage: 90 MCG/KG SEVEN TIMES  EVERY SIX HOURS.
     Route: 042
  7. NOVOSEVEN [Suspect]
     Active Substance: COAGULATION FACTOR VIIA RECOMBINANT HUMAN
     Dosage: 90 MCG/KG THREE TIMES EVERY TWO HOURS
     Route: 042

REACTIONS (3)
  - Haemarthrosis [Not Recovered/Not Resolved]
  - Muscle haemorrhage [Unknown]
  - Therapeutic response decreased [Recovering/Resolving]
